FAERS Safety Report 25261467 (Version 3)
Quarter: 2025Q2

REPORT INFORMATION
  Report Type: Report from Study
  Country: US (occurrence: US)
  Receive Date: 20250501
  Receipt Date: 20250626
  Transmission Date: 20250717
  Serious: Yes (Hospitalization)
  Sender: TAKEDA
  Company Number: US-TAKEDA-2025TUS004033

PATIENT
  Age: 77 Year
  Sex: Female
  Weight: 37.64 kg

DRUGS (11)
  1. TEDUGLUTIDE [Suspect]
     Active Substance: TEDUGLUTIDE
     Indication: Short-bowel syndrome
     Dosage: 2 MILLIGRAM, QD
  2. TEDUGLUTIDE [Suspect]
     Active Substance: TEDUGLUTIDE
     Dosage: 2 MILLIGRAM, QD
  3. TEDUGLUTIDE [Suspect]
     Active Substance: TEDUGLUTIDE
     Dosage: 2 MILLIGRAM, QD
  4. TEDUGLUTIDE [Suspect]
     Active Substance: TEDUGLUTIDE
     Dosage: 2 MILLIGRAM, QD
  5. TYLENOL [Concomitant]
     Active Substance: ACETAMINOPHEN
  6. LIDOCAINE [Concomitant]
     Active Substance: LIDOCAINE
  7. ONDANSETRON HYDROCHLORIDE [Concomitant]
     Active Substance: ONDANSETRON HYDROCHLORIDE
  8. MECLIZINE HYDROCHLORIDE [Concomitant]
     Active Substance: MECLIZINE HYDROCHLORIDE
  9. COLESTIPOL HYDROCHLORIDE [Concomitant]
     Active Substance: COLESTIPOL HYDROCHLORIDE
  10. BUSPIRONE HCL [Concomitant]
     Active Substance: BUSPIRONE HYDROCHLORIDE
  11. ABILIFY [Concomitant]
     Active Substance: ARIPIPRAZOLE

REACTIONS (10)
  - Road traffic accident [Unknown]
  - Post-traumatic neck syndrome [Unknown]
  - Confusional state [Unknown]
  - Influenza [Unknown]
  - Product dose omission issue [Unknown]
  - Product distribution issue [Unknown]
  - Chronic obstructive pulmonary disease [Unknown]
  - Pain [Unknown]
  - Appetite disorder [Unknown]
  - Malaise [Unknown]

NARRATIVE: CASE EVENT DATE: 20250109
